FAERS Safety Report 6376664-2 (Version None)
Quarter: 2009Q3

REPORT INFORMATION
  Report Type: 
  Country: None (occurrence: None)
  Receive Date: 20090925
  Receipt Date: 20090728
  Transmission Date: 20100115
  Serious: Yes (Death)
  Sender: FDA-Public Use
  Company Number: PHEH2009US11213

PATIENT
  Sex: Female

DRUGS (2)
  1. EXJADE [Suspect]
     Indication: IRON OVERLOAD
     Dosage: 1500 MG DAILY
     Route: 048
     Dates: start: 20080324, end: 20090606
  2. EXJADE [Suspect]
     Indication: IRON METABOLISM DISORDER

REACTIONS (1)
  - DEATH [None]
